FAERS Safety Report 9206816 (Version 1)
Quarter: 2013Q2

REPORT INFORMATION
  Report Type: Spontaneous
  Country: US (occurrence: US)
  Receive Date: 20130403
  Receipt Date: 20130403
  Transmission Date: 20140414
  Serious: Yes (Hospitalization, Other)
  Sender: FDA-Public Use
  Company Number: US-ELI_LILLY_AND_COMPANY-US201303008892

PATIENT
  Age: 56 Year
  Sex: Female

DRUGS (2)
  1. ZYPREXA RELPREVV [Suspect]
     Indication: SCHIZOPHRENIA
     Dosage: 405 MG, UNKNOWN
     Dates: end: 20121025
  2. GEODON [Concomitant]

REACTIONS (1)
  - Cardiac failure [Recovered/Resolved]
